FAERS Safety Report 9492256 (Version 3)
Quarter: 2013Q3

REPORT INFORMATION
  Report Type: Spontaneous
  Country: FR (occurrence: FR)
  Receive Date: 20130830
  Receipt Date: 20130910
  Transmission Date: 20140515
  Serious: Yes (Hospitalization)
  Sender: FDA-Public Use
  Company Number: FR-PFIZER INC-2013247640

PATIENT
  Age: 70 Year
  Sex: Female

DRUGS (11)
  1. TAHOR [Suspect]
     Dosage: 80 MG, DAILY
     Route: 048
     Dates: start: 20120802
  2. COVERSYL [Suspect]
     Dosage: 2.5 MG, DAILY
     Route: 048
     Dates: start: 20120802
  3. PROZAC [Suspect]
     Dosage: 20 MG, DAILY
     Route: 048
     Dates: start: 20120802
  4. INEXIUM [Suspect]
     Dosage: 20 MG, DAILY
     Route: 048
     Dates: start: 20120802
  5. PLAVIX [Suspect]
     Dosage: 75 MG, DAILY
     Route: 048
     Dates: start: 20120802
  6. MONOALGIC [Suspect]
     Dosage: 200 MG, ONCE DAILY
     Route: 048
     Dates: start: 20120802
  7. METFORMIN [Suspect]
     Dosage: 700 MG, TWICE A DAY
     Route: 048
     Dates: start: 20120802
  8. MONO-TILDIEM - SLOW RELEASE [Suspect]
     Dosage: 300 MG, ONCE DAILY
     Route: 048
     Dates: start: 20120802
  9. JANUVIA [Suspect]
     Dosage: 100 MG, DAILY
     Route: 048
     Dates: start: 20120802
  10. CORTANCYL [Suspect]
     Dosage: 20 MG, DAILY (IN THE MORNING)
     Route: 048
     Dates: start: 20120802
  11. LEVOTHYROX [Suspect]
     Dosage: 125 UG, DAILY
     Route: 048
     Dates: start: 20120802

REACTIONS (3)
  - Pemphigoid [Recovering/Resolving]
  - Erythema [Recovering/Resolving]
  - Pruritus [Recovering/Resolving]
